FAERS Safety Report 14308634 (Version 3)
Quarter: 2018Q3

REPORT INFORMATION
  Report Type: Spontaneous
  Country: US (occurrence: US)
  Receive Date: 20171220
  Receipt Date: 20180807
  Transmission Date: 20181010
  Serious: No
  Sender: FDA-Public Use
  Company Number: US-PFIZER INC-2017538046

PATIENT
  Age: 36 Year
  Sex: Female
  Weight: 58.96 kg

DRUGS (21)
  1. DOCETAXEL. [Suspect]
     Active Substance: DOCETAXEL
     Indication: LEUKAEMIA
     Dosage: UNK
     Dates: start: 2006, end: 2007
  2. DOCETAXEL. [Suspect]
     Active Substance: DOCETAXEL
     Indication: LEUKAEMIA
     Dosage: UNK
     Dates: start: 2006, end: 2007
  3. PRILOSEC [Concomitant]
     Active Substance: OMEPRAZOLE MAGNESIUM
     Dosage: UNK
  4. CIPRO [Concomitant]
     Active Substance: CIPROFLOXACIN HYDROCHLORIDE
     Dosage: UNK
  5. VALACYCLOVIR [Concomitant]
     Active Substance: VALACYCLOVIR HYDROCHLORIDE
     Dosage: UNK
     Dates: start: 20060901
  6. DOCEFREZ [Suspect]
     Active Substance: DOCETAXEL ANHYDROUS
     Indication: LYMPHOMA
  7. DIFLUCAN [Concomitant]
     Active Substance: FLUCONAZOLE
     Dosage: UNK
  8. DOCETAXEL. [Suspect]
     Active Substance: DOCETAXEL
     Indication: LYMPHOMA
  9. DOCETAXEL. [Suspect]
     Active Substance: DOCETAXEL
     Indication: LYMPHOMA
  10. FLAGYL [Concomitant]
     Active Substance: METRONIDAZOLE\METRONIDAZOLE HYDROCHLORIDE
     Dosage: UNK
  11. VALTREX [Concomitant]
     Active Substance: VALACYCLOVIR HYDROCHLORIDE
     Dosage: UNK
  12. PREDNISONE. [Concomitant]
     Active Substance: PREDNISONE
     Dosage: UNK
  13. TACROLIMUS. [Concomitant]
     Active Substance: TACROLIMUS
     Dosage: UNK
  14. NIFEDIPINE. [Concomitant]
     Active Substance: NIFEDIPINE
     Dosage: UNK
  15. DOCEFREZ [Suspect]
     Active Substance: DOCETAXEL ANHYDROUS
     Indication: LEUKAEMIA
     Dosage: UNK
     Dates: start: 2006, end: 2007
  16. ZIPRO [Concomitant]
     Dosage: UNK
     Dates: start: 20060901
  17. NYSTATIN. [Concomitant]
     Active Substance: NYSTATIN
     Dosage: UNK
     Dates: start: 20060901
  18. TAXOTERE [Suspect]
     Active Substance: DOCETAXEL
     Indication: LEUKAEMIA
     Dosage: UNK
     Dates: start: 2006, end: 2007
  19. TAXOTERE [Suspect]
     Active Substance: DOCETAXEL
     Indication: LYMPHOMA
  20. DAPSONE. [Concomitant]
     Active Substance: DAPSONE
     Dosage: UNK
  21. FLONASE [Concomitant]
     Active Substance: FLUTICASONE PROPIONATE
     Dosage: UNK

REACTIONS (4)
  - Alopecia [Not Recovered/Not Resolved]
  - Hair texture abnormal [Not Recovered/Not Resolved]
  - Hair disorder [Not Recovered/Not Resolved]
  - Hair colour changes [Not Recovered/Not Resolved]

NARRATIVE: CASE EVENT DATE: 2006
